FAERS Safety Report 18932838 (Version 3)
Quarter: 2021Q1

REPORT INFORMATION
  Report Type: Report from Study
  Country: FR (occurrence: FR)
  Receive Date: 20210224
  Receipt Date: 20210316
  Transmission Date: 20210420
  Serious: Yes (Hospitalization)
  Sender: FDA-Public Use
  Company Number: FR-TAKEDA-2021TUS010101

PATIENT
  Sex: Female
  Weight: 103 kg

DRUGS (3)
  1. 643 (LANADELUMAB) [Suspect]
     Active Substance: LANADELUMAB
     Indication: HEREDITARY ANGIOEDEMA
     Dosage: 300 MILLIGRAM, EVERY 15 DAYS
     Route: 058
     Dates: start: 20201030
  2. FIRAZYR [Suspect]
     Active Substance: ICATIBANT ACETATE
     Indication: PRODUCT USED FOR UNKNOWN INDICATION
     Dosage: 30 MILLIGRAM
     Route: 058
     Dates: start: 20200720
  3. FIRAZYR [Suspect]
     Active Substance: ICATIBANT ACETATE
     Indication: PRODUCT USED FOR UNKNOWN INDICATION
     Dosage: 30 MILLIGRAM
     Route: 058
     Dates: start: 20200720

REACTIONS (2)
  - Sleep apnoea syndrome [Not Recovered/Not Resolved]
  - Hysterectomy [Recovered/Resolved]

NARRATIVE: CASE EVENT DATE: 20201203
